FAERS Safety Report 18400824 (Version 1)
Quarter: 2020Q4

REPORT INFORMATION
  Report Type: Spontaneous
  Country: AT (occurrence: AT)
  Receive Date: 20201019
  Receipt Date: 20201019
  Transmission Date: 20210114
  Serious: Yes (Other)
  Sender: FDA-Public Use
  Company Number: NVSC2020AT273703

PATIENT
  Age: 53 Year
  Sex: Male

DRUGS (5)
  1. FOLATE [Suspect]
     Active Substance: FOLATE SODIUM
     Indication: PRODUCT USED FOR UNKNOWN INDICATION
     Dosage: UNK
     Route: 065
     Dates: start: 201307
  2. SIMPONI [Suspect]
     Active Substance: GOLIMUMAB
     Indication: PRODUCT USED FOR UNKNOWN INDICATION
     Dosage: 50 MG, QMO
     Route: 065
     Dates: start: 201707
  3. EBETREXAT [Suspect]
     Active Substance: METHOTREXATE SODIUM
     Indication: PRODUCT USED FOR UNKNOWN INDICATION
     Dosage: 10 MG
     Route: 065
     Dates: start: 201307
  4. SIMPONI [Suspect]
     Active Substance: GOLIMUMAB
     Dosage: 100 MG, QMO
     Route: 065
     Dates: start: 201802
  5. EBETREXAT [Suspect]
     Active Substance: METHOTREXATE SODIUM
     Dosage: 15 MG
     Route: 065
     Dates: start: 2017, end: 201805

REACTIONS (8)
  - Pain [Unknown]
  - Dactylitis [Unknown]
  - Therapeutic product effect incomplete [Unknown]
  - Psoriatic arthropathy [Unknown]
  - Musculoskeletal stiffness [Unknown]
  - Tenosynovitis [Unknown]
  - Extremity contracture [Unknown]
  - Spondyloarthropathy [Unknown]
